FAERS Safety Report 20903815 (Version 1)
Quarter: 2022Q2

REPORT INFORMATION
  Report Type: Spontaneous
  Country: JP (occurrence: JP)
  Receive Date: 20220602
  Receipt Date: 20220602
  Transmission Date: 20220721
  Serious: Yes (Death)
  Sender: FDA-Public Use
  Company Number: JP-MTPC-MTPC2022-0013895

PATIENT
  Age: 48 Year
  Sex: Female

DRUGS (1)
  1. EDARAVONE [Suspect]
     Active Substance: EDARAVONE
     Indication: Cerebral infarction
     Route: 065

REACTIONS (7)
  - Haematoma [Fatal]
  - Blood pressure decreased [Fatal]
  - Respiratory arrest [Fatal]
  - Meningomyelocele [Fatal]
  - Haemothorax [Fatal]
  - Altered state of consciousness [Not Recovered/Not Resolved]
  - Mydriasis [Not Recovered/Not Resolved]
